FAERS Safety Report 6717283-5 (Version None)
Quarter: 2010Q2

REPORT INFORMATION
  Report Type: 
  Country: None (occurrence: None)
  Receive Date: 20100510
  Receipt Date: 20100505
  Transmission Date: 20101027
  Serious: Yes (Hospitalization)
  Sender: FDA-Public Use
  Company Number: DE-SANOFI-AVENTIS-2010SA015411

PATIENT
  Age: 49 Year
  Sex: Female
  Weight: 87 kg

DRUGS (10)
  1. MULTAQ [Suspect]
     Indication: TACHYCARDIA
     Route: 048
     Dates: start: 20100217
  2. GLIMEPIRIDE [Interacting]
     Route: 048
     Dates: start: 20080101, end: 20100101
  3. MARCUMAR [Concomitant]
     Indication: DRUG USE FOR UNKNOWN INDICATION
     Dosage: AFTER INR
     Route: 065
  4. ATACAND [Concomitant]
     Route: 065
     Dates: start: 20030101
  5. METOHEXAL [Concomitant]
     Indication: HYPERTENSION
     Route: 065
     Dates: start: 20030101
  6. ORAL ANTIDIABETICS [Concomitant]
     Route: 065
     Dates: start: 20080101
  7. SPIRONOLACTONE [Concomitant]
     Route: 065
     Dates: start: 20030101
  8. DESOGESTREL AND ETHINYL ESTRADIOL [Concomitant]
     Indication: DRUG USE FOR UNKNOWN INDICATION
     Route: 065
  9. TORSEMIDE [Concomitant]
     Route: 065
     Dates: start: 20080101
  10. MAGNESIUM [Concomitant]
     Indication: DRUG USE FOR UNKNOWN INDICATION
     Route: 065

REACTIONS (4)
  - DRUG INTERACTION [None]
  - HYPOGLYCAEMIA [None]
  - INTERNATIONAL NORMALISED RATIO DECREASED [None]
  - SOMNOLENCE [None]
